FAERS Safety Report 4696179-7 (Version None)
Quarter: 2005Q2

REPORT INFORMATION
  Report Type: 
  Country: None (occurrence: None)
  Receive Date: 20050621
  Receipt Date: 20050603
  Transmission Date: 20051028
  Serious: Yes (Death)
  Sender: FDA-Public Use
  Company Number: GB-JNJFOC-20050401771

PATIENT
  Sex: Female
  Weight: 82 kg

DRUGS (12)
  1. REMICADE [Suspect]
     Indication: RHEUMATOID ARTHRITIS
     Route: 042
  2. AZATHIOPRINE [Concomitant]
  3. PREDNISOLONE [Concomitant]
  4. HYDROXYCHLOROQUINE SULFATE [Concomitant]
  5. SULFASALAZINE [Concomitant]
  6. CO-DYDRAMOL [Concomitant]
  7. CO-DYDRAMOL [Concomitant]
  8. BENDROFLUAZIDE [Concomitant]
  9. AMITRIPTYLINE [Concomitant]
  10. PROPRANOLOL [Concomitant]
  11. LISINOPRIL [Concomitant]
  12. FOSAMAX [Concomitant]

REACTIONS (3)
  - CORONARY ARTERY DISEASE [None]
  - GASTROENTERITIS VIRAL [None]
  - MYOCARDIAL INFARCTION [None]
